FAERS Safety Report 10101098 (Version 1)
Quarter: 2014Q2

REPORT INFORMATION
  Report Type: Spontaneous
  Country: NL (occurrence: NL)
  Receive Date: 20140424
  Receipt Date: 20140424
  Transmission Date: 20141212
  Serious: Yes (Death)
  Sender: FDA-Public Use
  Company Number: NL-AMGEN INC.-NLDSP2014029467

PATIENT
  Age: 55 Year
  Sex: Female

DRUGS (1)
  1. XGEVA [Suspect]
     Indication: PRODUCT USED FOR UNKNOWN INDICATION
     Dosage: 1.7 ML, Q4WK
     Route: 058
     Dates: end: 20140321

REACTIONS (1)
  - Death [Fatal]
